FAERS Safety Report 16472976 (Version 11)
Quarter: 2019Q4

REPORT INFORMATION
  Report Type: Spontaneous
  Country: PL (occurrence: PL)
  Receive Date: 20190625
  Receipt Date: 20191213
  Transmission Date: 20200122
  Serious: Yes (Hospitalization, Disabling, Other)
  Sender: FDA-Public Use
  Company Number: PL-AUROBINDO-AUR-APL-2019-036282

PATIENT
  Age: 56 Year
  Sex: Female

DRUGS (11)
  1. CELECOXIB. [Interacting]
     Active Substance: CELECOXIB
     Indication: SPINAL PAIN
     Dosage: 400 MILLIGRAM, ONCE A DAY
     Route: 065
  2. ENALAPRIL MALEATE. [Interacting]
     Active Substance: ENALAPRIL MALEATE
     Indication: HYPERTENSION
     Dosage: 20 MILLIGRAM, ONCE A DAY
     Route: 065
  3. HYDROXYZINE HYDROCHLORIDE. [Interacting]
     Active Substance: HYDROXYZINE HYDROCHLORIDE
     Indication: DEPRESSION
  4. OMEPRAZOLE. [Suspect]
     Active Substance: OMEPRAZOLE
     Indication: BACK PAIN
     Dosage: 40 MILLIGRAM, ONCE A DAY
     Route: 065
  5. SERTRALINE [Interacting]
     Active Substance: SERTRALINE HYDROCHLORIDE
     Indication: DEPRESSION
     Dosage: 100 MILLIGRAM, ONCE A DAY,IN THE MORNING
     Route: 065
  6. CELECOXIB. [Interacting]
     Active Substance: CELECOXIB
     Indication: BACK PAIN
  7. HYDROXYZINE HYDROCHLORIDE. [Interacting]
     Active Substance: HYDROXYZINE HYDROCHLORIDE
     Indication: INSOMNIA
     Dosage: 25 MILLIGRAM, ONCE A DAY (IN THE EVENING)
     Route: 065
  8. INDAPAMIDE. [Interacting]
     Active Substance: INDAPAMIDE
     Indication: HYPERTENSION
     Dosage: 1.5 MILLIGRAM, ONCE A DAY
     Route: 065
  9. INDAPAMIDE. [Interacting]
     Active Substance: INDAPAMIDE
     Indication: HYPERTENSION
     Dosage: 1.5 MILLIGRAM, ONCE A DAY
     Route: 065
  10. OMEPRAZOLE. [Suspect]
     Active Substance: OMEPRAZOLE
     Indication: SPINAL PAIN
  11. HYDROXYZINE HYDROCHLORIDE. [Interacting]
     Active Substance: HYDROXYZINE HYDROCHLORIDE
     Indication: INITIAL INSOMNIA

REACTIONS (10)
  - Dysphagia [Recovered/Resolved]
  - Product use in unapproved indication [Unknown]
  - Iron deficiency [Recovered/Resolved]
  - Pain [Recovered/Resolved]
  - Drug interaction [Recovered/Resolved]
  - Back pain [Recovered/Resolved]
  - Burning mouth syndrome [Recovered/Resolved]
  - Multiple drug therapy [Recovered/Resolved]
  - Oral discomfort [Recovered/Resolved]
  - Hypophagia [Recovered/Resolved]
